FAERS Safety Report 8919550 (Version 5)
Quarter: 2013Q2

REPORT INFORMATION
  Report Type: Report from Study
  Country: JP (occurrence: JP)
  Receive Date: 20121121
  Receipt Date: 20130513
  Transmission Date: 20140414
  Serious: Yes (Hospitalization, Other)
  Sender: FDA-Public Use
  Company Number: JP-009507513-1211JPN007042

PATIENT
  Age: 66 Year
  Sex: Male
  Weight: 67 kg

DRUGS (17)
  1. PEGINTRON [Suspect]
     Indication: CHRONIC HEPATITIS C
     Dosage: 1.5 MICROGRAM PER KILOGRAM, UNK
     Route: 058
     Dates: start: 20120830, end: 20121003
  2. PEGINTRON [Suspect]
     Dosage: 1.5 MICROGRAM PER KILOGRAM, QW
     Route: 058
     Dates: start: 20121105, end: 20130206
  3. REBETOL [Suspect]
     Indication: CHRONIC HEPATITIS C
     Dosage: 800 MG, QD
     Route: 048
     Dates: start: 20120830, end: 20120925
  4. REBETOL [Suspect]
     Dosage: 600 MG, QD
     Route: 048
     Dates: start: 20120926, end: 20121002
  5. REBETOL [Suspect]
     Dosage: 400 MG, QD
     Route: 048
     Dates: start: 20121003, end: 20121011
  6. REBETOL [Suspect]
     Dosage: 200 MG, QD
     Route: 048
     Dates: start: 20121105, end: 20121112
  7. REBETOL [Suspect]
     Dosage: 400 MG, QD
     Route: 048
     Dates: start: 20121113, end: 20121211
  8. REBETOL [Suspect]
     Dosage: 200 MG, QD
     Route: 048
     Dates: start: 20121212, end: 20130212
  9. TELAVIC [Suspect]
     Indication: CHRONIC HEPATITIS C
     Dosage: 1500 MG, QD
     Route: 048
     Dates: start: 20120830, end: 20121012
  10. ZYLORIC [Concomitant]
     Indication: BLOOD URIC ACID INCREASED
     Dosage: POR: 200 MG, QD
     Route: 048
     Dates: end: 20130212
  11. TAKEPRON [Concomitant]
     Indication: PROPHYLAXIS
     Dosage: POR. 30 MG, QD
     Route: 048
     Dates: start: 20120902
  12. DERMOVATE [Concomitant]
     Dosage: AS NEEDED
     Route: 061
     Dates: start: 20121012
  13. FOSAMAC [Concomitant]
     Indication: PROPHYLAXIS
     Dosage: 5 MG, QD
     Route: 048
     Dates: start: 20121022
  14. FLIVAS [Concomitant]
     Indication: BENIGN PROSTATIC HYPERPLASIA
     Dosage: 50 MG - 75 MG
     Route: 048
     Dates: start: 20121023
  15. MYSLEE [Concomitant]
     Indication: INSOMNIA
     Dosage: 5 MG/AS NEEDED AT THE TIME OF INSOMNIA
     Route: 048
     Dates: start: 20121028, end: 20121108
  16. BETANIS [Concomitant]
     Indication: BENIGN PROSTATIC HYPERPLASIA
     Dosage: 50 MG, QD
     Route: 048
     Dates: start: 20121106
  17. LENDORMIN D [Concomitant]
     Indication: INSOMNIA
     Dosage: 0.25 MG/AS NEEDED AT THE TIME  OF INSOMNIA
     Route: 048
     Dates: start: 20121109

REACTIONS (3)
  - Anaemia [Recovered/Resolved]
  - Erythema multiforme [Recovering/Resolving]
  - Erythema multiforme [Unknown]
